FAERS Safety Report 4661586-5 (Version None)
Quarter: 2005Q2

REPORT INFORMATION
  Report Type: 
  Country: None (occurrence: None)
  Receive Date: 20050513
  Receipt Date: 20030908
  Transmission Date: 20051028
  Serious: Yes (Death)
  Sender: FDA-Public Use
  Company Number: US-MERCK-0309USA00840

PATIENT
  Age: 55 Year
  Sex: Male
  Weight: 123 kg

DRUGS (7)
  1. VIOXX [Suspect]
     Indication: ARTHRALGIA
     Route: 048
     Dates: start: 20010626, end: 20010628
  2. SERZONE [Concomitant]
     Route: 065
  3. VITAMINS (UNSPECIFIED) [Concomitant]
     Route: 065
  4. FLONASE [Concomitant]
     Route: 065
  5. MOTRIN [Concomitant]
     Indication: ARTHRALGIA
     Route: 065
     Dates: start: 20010625
  6. VICODIN [Concomitant]
     Indication: ARTHRALGIA
     Route: 065
  7. TYLENOL W/ CODEINE NO. 3 [Concomitant]
     Indication: ARTHRALGIA
     Route: 048
     Dates: start: 20010626, end: 20010628

REACTIONS (7)
  - ACUTE MYOCARDIAL INFARCTION [None]
  - ELECTROMECHANICAL DISSOCIATION [None]
  - LOSS OF CONSCIOUSNESS [None]
  - MALAISE [None]
  - PULSE ABSENT [None]
  - PUPIL FIXED [None]
  - SLEEP APNOEA SYNDROME [None]
